FAERS Safety Report 4595915-8 (Version None)
Quarter: 2005Q1

REPORT INFORMATION
  Report Type: 
  Country: None (occurrence: None)
  Receive Date: 20050224
  Receipt Date: 20050224
  Transmission Date: 20050727
  Serious: Yes (Hospitalization)
  Sender: FDA-Public Use
  Company Number: None

PATIENT

DRUGS (1)
  1. TEQUIN [Suspect]
     Dosage: PO     QD
     Dates: start: 20040501, end: 20050222

REACTIONS (1)
  - BLOOD GLUCOSE INCREASED [None]
